FAERS Safety Report 8500159-0 (Version None)
Quarter: 2012Q3

REPORT INFORMATION
  Report Type: 
  Country: None (occurrence: None)
  Receive Date: 20120710
  Receipt Date: 20120706
  Transmission Date: 20120928
  Serious: Yes (Other)
  Sender: FDA-Public Use
  Company Number: US-PFIZER INC-2012091192

PATIENT
  Sex: Female
  Weight: 59 kg

DRUGS (22)
  1. CLONAZEPAM [Concomitant]
     Dosage: UNK
  2. VISTARIL [Concomitant]
     Dosage: UNK
  3. PROCHLORPERAZINE [Concomitant]
     Dosage: UNK
  4. LAMICTAL [Concomitant]
     Dosage: UNK
  5. FLEXERIL [Concomitant]
     Dosage: UNK
  6. MUCINEX [Concomitant]
     Dosage: UNK
  7. GENERLAC [Concomitant]
     Dosage: UNK
  8. OMEPRAZOLE [Concomitant]
     Dosage: UNK
  9. FLONASE [Concomitant]
     Dosage: UNK
  10. NORCO [Concomitant]
     Dosage: UNK
  11. METHYLPHENIDATE [Concomitant]
     Dosage: UNK
  12. PILOCARPINE [Concomitant]
     Dosage: UNK
  13. CHANTIX [Suspect]
     Indication: SMOKING CESSATION THERAPY
     Dosage: UNK
     Route: 048
     Dates: start: 20080101
  14. NYSTATIN [Concomitant]
     Dosage: UNK
  15. CHANTIX [Suspect]
     Dosage: UNK
     Route: 048
     Dates: start: 20090101
  16. CHANTIX [Suspect]
     Dosage: UNK
     Route: 048
     Dates: start: 20120101
  17. TEMAZEPAM [Concomitant]
     Dosage: UNK
  18. MORPHINE [Concomitant]
     Dosage: UNK
  19. LEVOTHYROXINE [Concomitant]
     Dosage: UNK
  20. PROAIR HFA [Concomitant]
     Dosage: UNK
  21. SYMBICORT [Concomitant]
     Dosage: UNK
  22. SAPHRIS [Concomitant]
     Dosage: UNK

REACTIONS (4)
  - THROAT CANCER [None]
  - PAIN [None]
  - SELF-MEDICATION [None]
  - DRUG ADMINISTRATION ERROR [None]
